FAERS Safety Report 6882034-0 (Version None)
Quarter: 2010Q2

REPORT INFORMATION
  Report Type: 
  Country: None (occurrence: None)
  Receive Date: 20100630
  Receipt Date: 20090512
  Transmission Date: 20101027
  Serious: No
  Sender: FDA-Public Use
  Company Number: 2009-01099

PATIENT
  Age: 37 Year
  Sex: Male
  Weight: 95.2554 kg

DRUGS (2)
  1. ZICAM MULTI-SYMPTOM DAYTIME [Suspect]
     Dosage: TID X 1 DAY
     Dates: start: 20090509, end: 20090510
  2. ZICAM MULTI-SYMPTOM NIGHTTIME [Suspect]
     Dosage: QD X 1 DAY
     Dates: start: 20090509, end: 20090510

REACTIONS (2)
  - AGEUSIA [None]
  - ANOSMIA [None]
